FAERS Safety Report 7710450-3 (Version None)
Quarter: 2011Q3

REPORT INFORMATION
  Report Type: 
  Country: None (occurrence: None)
  Receive Date: 20110825
  Receipt Date: 20110815
  Transmission Date: 20111222
  Serious: Yes (Other)
  Sender: FDA-Public Use
  Company Number: US-BAXTER-2011BH026926

PATIENT
  Age: 29 Year
  Sex: Female

DRUGS (11)
  1. LIDOCAINE HCL [Suspect]
     Indication: GENERAL ANAESTHESIA
     Route: 065
  2. BUPIVACAINE HCL [Suspect]
     Route: 037
  3. FENTANYL CITRATE [Suspect]
     Indication: GENERAL ANAESTHESIA
     Route: 008
  4. FENTANYL CITRATE [Suspect]
     Route: 008
  5. BUPIVACAINE HCL [Suspect]
     Indication: GENERAL ANAESTHESIA
     Route: 008
  6. BUPIVACAINE HCL [Suspect]
     Route: 008
  7. EPINEPHRINE [Suspect]
     Indication: BLOOD PRESSURE MANAGEMENT
     Route: 065
  8. LEVOTHYROXINE SODIUM [Concomitant]
     Indication: PRODUCT USED FOR UNKNOWN INDICATION
     Route: 065
  9. BUPIVACAINE HCL [Suspect]
     Route: 008
  10. PHENYLEPHRINE HYDROCHLORIDE [Suspect]
     Indication: BLOOD PRESSURE MANAGEMENT
     Route: 065
  11. ASPIRIN [Concomitant]
     Indication: PRODUCT USED FOR UNKNOWN INDICATION
     Route: 065

REACTIONS (3)
  - MATERNAL EXPOSURE DURING PREGNANCY [None]
  - POSTPARTUM HAEMORRHAGE [None]
  - SLEEP APNOEA SYNDROME [None]
